FAERS Safety Report 12101052 (Version 1)
Quarter: 2016Q1

REPORT INFORMATION
  Report Type: Spontaneous
  Country: US (occurrence: US)
  Receive Date: 20160222
  Receipt Date: 20160222
  Transmission Date: 20160526
  Serious: Yes (Hospitalization)
  Sender: FDA-Public Use
  Company Number: US-PFIZER INC-2016088512

PATIENT
  Age: 62 Year
  Sex: Male
  Weight: 108.8 kg

DRUGS (1)
  1. SUTENT [Suspect]
     Active Substance: SUNITINIB MALATE
     Indication: RENAL CANCER
     Dosage: 50 MG, CYCLIC (50 MG ONCE DAILY 6 WEEK CYCLE, 4 WEEKS TAKING IT AND 2 WEEKS OFF)
     Route: 048
     Dates: start: 201506

REACTIONS (2)
  - Constipation [Recovering/Resolving]
  - Drug dose omission [Unknown]
